FAERS Safety Report 4783352-2 (Version None)
Quarter: 2005Q3

REPORT INFORMATION
  Report Type: 
  Country: None (occurrence: None)
  Receive Date: 20050914
  Receipt Date: 20040902
  Transmission Date: 20060218
  Serious: Yes (Disabling)
  Sender: FDA-Public Use
  Company Number: 163-20785-04040219

PATIENT
  Age: 68 Year
  Sex: Female

DRUGS (2)
  1. THALOMID [Suspect]
     Indication: CUTANEOUS LUPUS ERYTHEMATOSUS
     Dosage: 100 MG, QD, ORAL
     Route: 048
     Dates: start: 20021001, end: 20040201
  2. THALOMID [Suspect]
     Indication: RHEUMATOID ARTHRITIS
     Dosage: 100 MG, QD, ORAL
     Route: 048
     Dates: start: 20021001, end: 20040201

REACTIONS (1)
  - NEUROPATHY PERIPHERAL [None]
